FAERS Safety Report 7101543-2 (Version None)
Quarter: 2010Q4

REPORT INFORMATION
  Report Type: 
  Country: None (occurrence: None)
  Receive Date: 20101115
  Receipt Date: 20101111
  Transmission Date: 20110411
  Serious: Yes (Death)
  Sender: FDA-Public Use
  Company Number: SK-PFIZER INC-2010143576

PATIENT
  Age: 65 Year
  Sex: Female

DRUGS (8)
  1. SUNITINIB MALATE [Suspect]
     Dosage: 37.5 MG, CYCLIC
     Dates: start: 20100821
  2. BISOPROLOL [Concomitant]
     Dosage: 5 MG, 1X/DAY
  3. ALISKIREN [Concomitant]
     Dosage: 300 MG, 1X/DAY
  4. DUPHALAC [Concomitant]
     Dosage: UNK
  5. HELICID [Concomitant]
     Dosage: 20 MG, 1X/DAY
  6. PRESTANCE [Concomitant]
     Dosage: 5 MG, 1X/DAY
  7. ALPRAZOLAM [Concomitant]
     Dosage: 0.25 MG, 2X/DAY
  8. DICYNONE [Concomitant]

REACTIONS (1)
  - CARDIAC FAILURE [None]
